FAERS Safety Report 8839987 (Version 1)
Quarter: 2012Q4

REPORT INFORMATION
  Report Type: 
  Country: US (occurrence: US)
  Receive Date: 20121015
  Receipt Date: 20121015
  Transmission Date: 20130627
  Serious: Yes (Hospitalization)
  Sender: FDA-Public Use
  Company Number: US-GILEAD-2012-0062923

PATIENT
  Age: 31 Year
  Sex: Female

DRUGS (2)
  1. LETAIRIS [Suspect]
     Indication: PRODUCT USED FOR UNKNOWN INDICATION
     Dosage: 5 mg, UNK
     Route: 048
     Dates: start: 20120730, end: 20120820
  2. LETAIRIS [Suspect]
     Dates: start: 20120730

REACTIONS (4)
  - Loss of consciousness [Unknown]
  - Red blood cell count decreased [Unknown]
  - Fatigue [Unknown]
  - Swelling [Unknown]
